FAERS Safety Report 8309039-7 (Version None)
Quarter: 2012Q2

REPORT INFORMATION
  Report Type: 
  Country: None (occurrence: None)
  Receive Date: 20120424
  Receipt Date: 20120413
  Transmission Date: 20120825
  Serious: Yes (Other)
  Sender: FDA-Public Use
  Company Number: US-ELI_LILLY_AND_COMPANY-US201202008527

PATIENT
  Sex: Female
  Weight: 65.306 kg

DRUGS (12)
  1. CALCIUM [Concomitant]
  2. DUREZOL [Concomitant]
  3. HYDROXYCHLOROQUINE SULFATE [Concomitant]
     Dosage: 200 MG, BID
  4. CYCLOSPORINE [Concomitant]
  5. MINOCYCLINE HCL [Concomitant]
  6. ASPIRIN [Concomitant]
  7. PREDNISONE TAB [Concomitant]
  8. EFFEXOR [Concomitant]
  9. METOPROLOL TARTRATE [Concomitant]
  10. FORTEO [Suspect]
     Indication: OSTEOPOROSIS
     Dosage: 20 UG, QD
     Route: 065
     Dates: start: 20100512, end: 20111101
  11. FORTEO [Suspect]
     Dosage: 20 UG, QD
     Route: 065
     Dates: start: 20120226, end: 20120226
  12. ACYCLOVIR [Concomitant]

REACTIONS (10)
  - CONJUNCTIVITIS VIRAL [None]
  - HAND FRACTURE [None]
  - FALL [None]
  - ILL-DEFINED DISORDER [None]
  - CALCINOSIS [None]
  - HIP FRACTURE [None]
  - JAW FRACTURE [None]
  - HERPES ZOSTER [None]
  - CORNEAL DISORDER [None]
  - BLOOD CALCIUM INCREASED [None]
